FAERS Safety Report 13914484 (Version 1)
Quarter: 2017Q3

REPORT INFORMATION
  Report Type: Spontaneous
  Country: US (occurrence: US)
  Receive Date: 20170828
  Receipt Date: 20170828
  Transmission Date: 20171127
  Serious: No
  Sender: FDA-Public Use
  Company Number: US-ROCHE-1138040

PATIENT
  Sex: Female

DRUGS (3)
  1. NUTROPIN [Suspect]
     Active Substance: SOMATROPIN
     Indication: HYPOPITUITARISM
  2. THYROID [Concomitant]
     Active Substance: LEVOTHYROXINE\LIOTHYRONINE
  3. DDAVP [Concomitant]
     Active Substance: DESMOPRESSIN ACETATE

REACTIONS (5)
  - Malaise [Unknown]
  - Body fat disorder [Unknown]
  - Lethargy [Unknown]
  - Fatigue [Unknown]
  - Weight increased [Unknown]
